FAERS Safety Report 24919775 (Version 1)
Quarter: 2025Q1

REPORT INFORMATION
  Report Type: Report from Study
  Country: US (occurrence: US)
  Receive Date: 20250204
  Receipt Date: 20250204
  Transmission Date: 20250408
  Serious: No
  Sender: EXELIXIS
  Company Number: US-EXELIXIS-CABO-23072248

PATIENT
  Sex: Male
  Weight: 68.2 kg

DRUGS (8)
  1. CABOMETYX [Suspect]
     Active Substance: CABOZANTINIB S-MALATE
     Indication: Renal cell carcinoma
     Route: 048
     Dates: start: 20230706, end: 20231128
  2. CABOMETYX [Suspect]
     Active Substance: CABOZANTINIB S-MALATE
     Dosage: 40 MG, QD
     Route: 048
     Dates: start: 20231219
  3. NITROGLYCERIN [Concomitant]
     Active Substance: NITROGLYCERIN
  4. FUROSEMIDE [Concomitant]
     Active Substance: FUROSEMIDE
  5. TRELEGY ELLIPTA [Concomitant]
     Active Substance: FLUTICASONE FUROATE\UMECLIDINIUM BROMIDE\VILANTEROL TRIFENATATE
  6. ISOSORBIDE MONONITRATE [Concomitant]
     Active Substance: ISOSORBIDE MONONITRATE
  7. ASPIRIN [Concomitant]
     Active Substance: ASPIRIN
  8. Coricidin [Concomitant]

REACTIONS (1)
  - Skin exfoliation [Unknown]
